FAERS Safety Report 6213137-1 (Version None)
Quarter: 2009Q2

REPORT INFORMATION
  Report Type: 
  Country: None (occurrence: None)
  Receive Date: 20090601
  Receipt Date: 20090601
  Transmission Date: 20091009
  Serious: Yes (Hospitalization)
  Sender: FDA-Public Use
  Company Number: None

PATIENT
  Sex: Male
  Weight: 71 kg

DRUGS (5)
  1. CYCLOPHOSPHAMIDE [Suspect]
     Dosage: 1320 MG
  2. DOXORUBICIN HYDROCHLORIDE [Suspect]
     Dosage: 88 MG
  3. PREDNISONE [Suspect]
     Dosage: 350 MG
  4. RITUXIMAB (MOAB C2B8 ANTI CD20, CHIMERIC) [Suspect]
     Dosage: 660 MG
  5. VINCRISTINE SULFATE [Suspect]
     Dosage: 2 MG

REACTIONS (3)
  - CONFUSIONAL STATE [None]
  - POSTOPERATIVE WOUND COMPLICATION [None]
  - PYREXIA [None]
